FAERS Safety Report 11609940 (Version 1)
Quarter: 2015Q4

REPORT INFORMATION
  Report Type: Spontaneous
  Country: US (occurrence: US)
  Receive Date: 20151007
  Receipt Date: 20151007
  Transmission Date: 20160304
  Serious: No
  Sender: FDA-Public Use
  Company Number: US-009507513-1509USA014751

PATIENT
  Age: 78 Year
  Sex: Female

DRUGS (2)
  1. TUDORZA PRESSAIR [Concomitant]
     Active Substance: ACLIDINIUM BROMIDE
     Indication: CHRONIC OBSTRUCTIVE PULMONARY DISEASE
  2. DULERA [Suspect]
     Active Substance: FORMOTEROL FUMARATE DIHYDRATE\MOMETASONE FUROATE
     Dosage: UNK
     Route: 055
     Dates: start: 201508

REACTIONS (1)
  - Dysphonia [Unknown]

NARRATIVE: CASE EVENT DATE: 201508
